FAERS Safety Report 23376693 (Version 1)
Quarter: 2024Q1

REPORT INFORMATION
  Report Type: Other
  Country: PK (occurrence: None)
  Receive Date: 20240108
  Receipt Date: 20240108
  Transmission Date: 20240410
  Serious: Yes (Other)
  Sender: FDA-Public Use
  Company Number: PK-ROCHE-3358971

PATIENT
  Age: 59 Year
  Sex: Female

DRUGS (4)
  1. RITUXIMAB [Suspect]
     Active Substance: RITUXIMAB
     Indication: Follicular lymphoma
     Dosage: TOTAL CYCLE: 06
     Route: 041
     Dates: start: 20221203
  2. RITUXIMAB [Suspect]
     Active Substance: RITUXIMAB
     Indication: Diffuse large B-cell lymphoma
     Dosage: FOR 12 CYCLE. PATIENT RECEIVED 6 CYCLES AND LAST CYCLE WAS ADMINISTERED IN JUN/2023
     Route: 042
     Dates: start: 202301
  3. RITUXIMAB [Suspect]
     Active Substance: RITUXIMAB
     Dosage: TOTAL CYCLE: 06
     Route: 041
     Dates: start: 20231215
  4. POLIVY [Suspect]
     Active Substance: POLATUZUMAB VEDOTIN-PIIQ
     Indication: Diffuse large B-cell lymphoma
     Dosage: TOTAL CYCLE: 06
     Route: 042
     Dates: start: 20231215

REACTIONS (2)
  - Weight decreased [Unknown]
  - Diffuse large B-cell lymphoma recurrent [Unknown]
